FAERS Safety Report 10394128 (Version 1)
Quarter: 2014Q3

REPORT INFORMATION
  Report Type: Spontaneous
  Country: JP (occurrence: JP)
  Receive Date: 20140819
  Receipt Date: 20140819
  Transmission Date: 20150326
  Serious: Yes (Death, Other)
  Sender: FDA-Public Use
  Company Number: PHHY2010JP096484

PATIENT
  Age: 81 Year
  Sex: Female

DRUGS (2)
  1. CYCLOSPORIN [Concomitant]
     Active Substance: CYCLOSPORINE
     Dosage: UNK UKN, UNK
  2. EXJADE [Suspect]
     Active Substance: DEFERASIROX
     Indication: APLASTIC ANAEMIA
     Dosage: 21.6 MG/KG, DAILY
     Dates: start: 20081006

REACTIONS (4)
  - Sepsis [Fatal]
  - Gastrointestinal disorder [Unknown]
  - Blood creatinine increased [Unknown]
  - Cardiac failure [Unknown]
